FAERS Safety Report 8127966-0 (Version None)
Quarter: 2012Q1

REPORT INFORMATION
  Report Type: 
  Country: None (occurrence: None)
  Receive Date: 20120210
  Receipt Date: 20120207
  Transmission Date: 20120608
  Serious: Yes (Death)
  Sender: FDA-Public Use
  Company Number: KP-ROXANE LABORATORIES, INC.-2012-RO-00617RO

PATIENT
  Age: 60 Year
  Sex: Male

DRUGS (8)
  1. METHOTREXATE [Suspect]
     Route: 042
  2. ETOPOSIDE [Suspect]
     Indication: LYMPHOMA
     Route: 042
  3. PREDNISOLONE [Suspect]
     Indication: LYMPHOMA
     Dosage: 300 MG
     Route: 048
  4. IFOSFAMIDE [Suspect]
     Indication: LYMPHOMA
     Route: 042
  5. MESNA [Suspect]
     Indication: LYMPHOMA
     Route: 042
  6. METHOTREXATE [Suspect]
     Indication: LYMPHOMA
     Route: 037
  7. HYDROCORTISONE [Suspect]
     Indication: LYMPHOMA
     Route: 037
  8. CYTARABINE [Suspect]
     Indication: LYMPHOMA
     Route: 037

REACTIONS (1)
  - LEUKOENCEPHALOPATHY [None]
